FAERS Safety Report 14282637 (Version 2)
Quarter: 2017Q4

REPORT INFORMATION
  Report Type: Spontaneous
  Country: IT (occurrence: IT)
  Receive Date: 20171213
  Receipt Date: 20171222
  Transmission Date: 20180321
  Serious: Yes (Other)
  Sender: FDA-Public Use
  Company Number: IT-PFIZER INC-2017525691

PATIENT
  Age: 21 Year
  Sex: Female

DRUGS (8)
  1. ARIPIPRAZOLE. [Interacting]
     Active Substance: ARIPIPRAZOLE
     Dosage: 2.5 MG, 1X/DAY
  2. TIAPRIDE HYDROCHLORIDE [Suspect]
     Active Substance: TIAPRIDE HYDROCHLORIDE
     Indication: TOURETTE^S DISORDER
     Dosage: 100 MG, 1X/DAY
  3. FLUOXETINE [Interacting]
     Active Substance: FLUOXETINE HYDROCHLORIDE
     Dosage: 20 MG, 1X/DAY
  4. SERTRALINE HCL [Suspect]
     Active Substance: SERTRALINE HYDROCHLORIDE
     Indication: TOURETTE^S DISORDER
     Dosage: 50 MG, 1X/DAY
  5. PAROXETINE. [Suspect]
     Active Substance: PAROXETINE
     Indication: TOURETTE^S DISORDER
     Dosage: 10 MG, 1X/DAY
  6. ARIPIPRAZOLE. [Interacting]
     Active Substance: ARIPIPRAZOLE
     Indication: TOURETTE^S DISORDER
     Dosage: 7.5 MG, 1X/DAY
  7. ARIPIPRAZOLE. [Interacting]
     Active Substance: ARIPIPRAZOLE
     Dosage: UNK, 1X/DAY
  8. FLUOXETINE [Interacting]
     Active Substance: FLUOXETINE HYDROCHLORIDE
     Indication: TOURETTE^S DISORDER
     Dosage: UNK

REACTIONS (12)
  - Off label use [Unknown]
  - Somnolence [Recovered/Resolved]
  - Gaze palsy [Recovered/Resolved]
  - Eye movement disorder [Recovered/Resolved]
  - Joint hyperextension [Recovered/Resolved]
  - Oculogyric crisis [Recovered/Resolved]
  - Decreased activity [Recovered/Resolved]
  - Posture abnormal [Recovered/Resolved]
  - Drug interaction [Unknown]
  - Slow response to stimuli [Recovered/Resolved]
  - Confusional state [Recovered/Resolved]
  - Drug level increased [Recovered/Resolved]
